FAERS Safety Report 4863337-8 (Version None)
Quarter: 2005Q4

REPORT INFORMATION
  Report Type: 
  Country: None (occurrence: None)
  Receive Date: 20051219
  Receipt Date: 20051209
  Transmission Date: 20060501
  Serious: Yes (Hospitalization, Other)
  Sender: FDA-Public Use
  Company Number: A-US2003-03655

PATIENT
  Age: 38 Year
  Sex: Female

DRUGS (11)
  1. TRACLEER(OBSENTAN) [Suspect]
     Indication: PULMONARY HYPERTENSION
     Dosage: 125 + 62.5 MG, BID, ORAL
     Route: 048
     Dates: start: 20030228, end: 20030414
  2. TRACLEER(OBSENTAN) [Suspect]
     Indication: PULMONARY HYPERTENSION
     Dosage: 125 + 62.5 MG, BID, ORAL
     Route: 048
     Dates: start: 20030414, end: 20031027
  3. FLOLAN [Concomitant]
  4. PREDNISONE [Concomitant]
  5. LASIX [Concomitant]
  6. PROPRANOLOL [Concomitant]
  7. RABEPRAZOLE SODIUM [Concomitant]
  8. ALDACTONE [Concomitant]
  9. K-DUR 10 [Concomitant]
  10. FOLIC ACID [Concomitant]
  11. POTASSIUM (POTASSIUM) [Concomitant]

REACTIONS (9)
  - ALANINE AMINOTRANSFERASE INCREASED [None]
  - ASCITES [None]
  - ASPARTATE AMINOTRANSFERASE INCREASED [None]
  - BLOOD ALKALINE PHOSPHATASE INCREASED [None]
  - BLOOD BILIRUBIN INCREASED [None]
  - FATIGUE [None]
  - GAMMA-GLUTAMYLTRANSFERASE INCREASED [None]
  - HEPATOMEGALY [None]
  - NAUSEA [None]
